FAERS Safety Report 11339882 (Version 1)
Quarter: 2015Q3

REPORT INFORMATION
  Report Type: Spontaneous
  Country: US (occurrence: US)
  Receive Date: 20150805
  Receipt Date: 20150805
  Transmission Date: 20151125
  Serious: No
  Sender: FDA-Public Use
  Company Number: US-PAR PHARMACEUTICAL, INC-2014SCPR008983

PATIENT

DRUGS (4)
  1. CALCITONIN [Suspect]
     Active Substance: CALCITONIN
     Indication: OSTEOPOROSIS
     Dosage: 1 SPR, OD IN ALTERNATED NOSTRILS
     Route: 045
     Dates: start: 20140113, end: 20140117
  2. CALCITONIN [Suspect]
     Active Substance: CALCITONIN
     Dosage: 1 SPR, OD IN ALTERNATED NOSTRILS
     Route: 045
     Dates: start: 20140117, end: 20140117
  3. VITAMIN D                          /00107901/ [Concomitant]
     Active Substance: ERGOCALCIFEROL
     Indication: VITAMIN D DECREASED
     Dosage: 1 DF, OD
     Route: 048
  4. SIMVASTATIN. [Concomitant]
     Active Substance: SIMVASTATIN
     Indication: HYPERTENSION
     Dosage: 1 DF, OD
     Route: 048

REACTIONS (2)
  - Product quality issue [Unknown]
  - Nasal discomfort [Recovered/Resolved]

NARRATIVE: CASE EVENT DATE: 20140113
